FAERS Safety Report 4457636-1 (Version None)
Quarter: 2004Q3

REPORT INFORMATION
  Report Type: 
  Country: None (occurrence: None)
  Receive Date: 20040922
  Receipt Date: 20040907
  Transmission Date: 20050211
  Serious: Yes (Other)
  Sender: FDA-Public Use
  Company Number: USA031152450

PATIENT
  Age: 80 Year
  Sex: Female
  Weight: 73 kg

DRUGS (2)
  1. HUMULIN 70/30 [Suspect]
     Indication: DIABETES MELLITUS
     Dosage: 68 U/DAY
     Dates: start: 19940101
  2. FORTEO [Suspect]
     Indication: OSTEOPOROSIS
     Dosage: 20 UG DAY
     Dates: start: 20030801

REACTIONS (10)
  - BLOOD GLUCOSE FLUCTUATION [None]
  - CARPAL TUNNEL SYNDROME [None]
  - FEELING ABNORMAL [None]
  - HYPOAESTHESIA [None]
  - INJECTION SITE BURNING [None]
  - INJECTION SITE DISCOLOURATION [None]
  - INJECTION SITE HAEMORRHAGE [None]
  - INJECTION SITE RASH [None]
  - OSTEOPOROSIS [None]
  - PHARMACEUTICAL PRODUCT COMPLAINT [None]
